FAERS Safety Report 23128984 (Version 1)
Quarter: 2023Q4

REPORT INFORMATION
  Report Type: Spontaneous
  Country: US (occurrence: US)
  Receive Date: 20231031
  Receipt Date: 20231031
  Transmission Date: 20240110
  Serious: Yes (Hospitalization)
  Sender: FDA-Public Use
  Company Number: US-drreddys-LIT/USA/23/0180777

PATIENT
  Sex: Male

DRUGS (11)
  1. CLONIDINE [Suspect]
     Active Substance: CLONIDINE
     Indication: Dystonia
  2. DIAZEPAM [Suspect]
     Active Substance: DIAZEPAM
     Indication: Dystonia
  3. CLONAZEPAM [Suspect]
     Active Substance: CLONAZEPAM
     Indication: Dystonia
  4. CLONAZEPAM [Suspect]
     Active Substance: CLONAZEPAM
  5. DEXMEDETOMIDINE [Suspect]
     Active Substance: DEXMEDETOMIDINE
     Indication: Dystonia
     Route: 042
  6. GABAPENTIN [Suspect]
     Active Substance: GABAPENTIN
     Indication: Dystonia
  7. MIDAZOLAM [Suspect]
     Active Substance: MIDAZOLAM
     Indication: Dystonia
     Dosage: 0.4 MG/KG/H
     Route: 042
  8. TETRABENAZINE [Suspect]
     Active Substance: TETRABENAZINE
     Indication: Dystonia
  9. TRIHEXYPHENIDYL [Suspect]
     Active Substance: TRIHEXYPHENIDYL
     Indication: Dystonia
  10. BACLOFEN [Suspect]
     Active Substance: BACLOFEN
     Indication: Dystonia
  11. VALPROIC ACID [Concomitant]
     Active Substance: VALPROIC ACID
     Indication: Seizure

REACTIONS (3)
  - Status dystonicus [Unknown]
  - Dystonia [Unknown]
  - Drug ineffective [Unknown]
